FAERS Safety Report 8359305-4 (Version None)
Quarter: 2012Q2

REPORT INFORMATION
  Report Type: 
  Country: None (occurrence: None)
  Receive Date: 20120515
  Receipt Date: 20120510
  Transmission Date: 20120825
  Serious: Yes (Death)
  Sender: FDA-Public Use
  Company Number: US-CELGENEUS-163-20785-12030519

PATIENT
  Sex: Male

DRUGS (6)
  1. THALOMID [Suspect]
     Dosage: 50 MILLIGRAM
     Route: 048
     Dates: start: 20120107, end: 20120216
  2. ETOPOSIDE [Concomitant]
     Indication: NEOPLASM
     Dosage: 50 MILLIGRAM
     Route: 048
     Dates: start: 20110101, end: 20120220
  3. GABAPENTIN [Concomitant]
     Indication: PAIN
     Dosage: 100 MILLIGRAM
     Route: 048
     Dates: start: 20110101, end: 20120222
  4. BACTRIM [Concomitant]
     Indication: ANTIFUNGAL PROPHYLAXIS
     Dosage: 40 MILLIGRAM
     Route: 048
     Dates: start: 20090101, end: 20120219
  5. ALBUTEROL [Concomitant]
     Indication: RESPIRATORY DISTRESS
     Dosage: 90 MICROGRAM
     Route: 055
     Dates: start: 20120101, end: 20120222
  6. CELEBREX [Concomitant]
     Indication: NEOPLASM
     Dosage: 50 MILLIGRAM
     Route: 048
     Dates: start: 20120107, end: 20120222

REACTIONS (1)
  - LUNG NEOPLASM MALIGNANT [None]
